FAERS Safety Report 17563591 (Version 2)
Quarter: 2020Q3

REPORT INFORMATION
  Report Type: Spontaneous
  Country: US (occurrence: US)
  Receive Date: 20200319
  Receipt Date: 20200720
  Transmission Date: 20201102
  Serious: No
  Sender: FDA-Public Use
  Company Number: US-AMGEN-USASP2020044001

PATIENT
  Sex: Female

DRUGS (2)
  1. ENBREL [Suspect]
     Active Substance: ETANERCEPT
     Indication: PSORIATIC ARTHROPATHY
     Dosage: 50 MILLIGRAM, QWK (HOLD FOR FEVER, INJECTION OR SURGERY)
     Route: 065
     Dates: start: 20190619
  2. ENBREL [Suspect]
     Active Substance: ETANERCEPT
     Dosage: 50 MILLIGRAM, QWK (HOLD FOR FEVER, INJECTION OR SURGERY)
     Route: 058

REACTIONS (1)
  - Product dose omission issue [Recovered/Resolved]
